FAERS Safety Report 21889230 (Version 4)
Quarter: 2024Q4

REPORT INFORMATION
  Report Type: Report from Study
  Country: DE (occurrence: DE)
  Receive Date: 20230120
  Receipt Date: 20241010
  Transmission Date: 20250114
  Serious: Yes (Hospitalization)
  Sender: ROCHE
  Company Number: DE-ROCHE-2329766

PATIENT
  Age: 47 Year
  Sex: Female

DRUGS (13)
  1. OCREVUS [Suspect]
     Active Substance: OCRELIZUMAB
     Indication: Relapsing-remitting multiple sclerosis
     Route: 042
     Dates: start: 20190510
  2. OCREVUS [Suspect]
     Active Substance: OCRELIZUMAB
     Route: 042
  3. OCREVUS [Suspect]
     Active Substance: OCRELIZUMAB
     Route: 042
     Dates: start: 20210105
  4. OCREVUS [Suspect]
     Active Substance: OCRELIZUMAB
     Route: 042
  5. AMLODIPINE [Suspect]
     Active Substance: AMLODIPINE BESYLATE
     Indication: Product used for unknown indication
     Route: 065
  6. TOLPERISONE [Concomitant]
     Active Substance: TOLPERISONE
  7. TIZANIDINE [Concomitant]
     Active Substance: TIZANIDINE
     Dosage: 0.5-0-2
  8. NABIXIMOLS [Concomitant]
     Active Substance: NABIXIMOLS
  9. MONTELUKAST SODIUM [Concomitant]
     Active Substance: MONTELUKAST SODIUM
  10. RAMIPRIL [Concomitant]
     Active Substance: RAMIPRIL
  11. CARBIMAZOLE [Concomitant]
     Active Substance: CARBIMAZOLE
  12. CHOLECALCIFEROL [Concomitant]
     Active Substance: CHOLECALCIFEROL
  13. FOLIC ACID [Concomitant]
     Active Substance: FOLIC ACID

REACTIONS (14)
  - Fatigue [Recovered/Resolved]
  - Headache [Recovered/Resolved]
  - Circulatory collapse [Recovered/Resolved]
  - Tachycardia [Recovered/Resolved]
  - Syncope [Recovered/Resolved]
  - Blood pressure fluctuation [Recovered/Resolved]
  - Erythema [Recovered/Resolved]
  - Swelling [Recovered/Resolved]
  - Spinal pain [Recovered/Resolved]
  - Gait disturbance [Not Recovered/Not Resolved]
  - COVID-19 [Recovered/Resolved]
  - Colitis microscopic [Recovering/Resolving]
  - B-lymphocyte count decreased [Not Recovered/Not Resolved]
  - Influenza like illness [Recovered/Resolved]

NARRATIVE: CASE EVENT DATE: 20190510
